FAERS Safety Report 25870784 (Version 1)
Quarter: 2025Q4

REPORT INFORMATION
  Report Type: Spontaneous
  Country: US (occurrence: None)
  Receive Date: 20251001
  Receipt Date: 20251001
  Transmission Date: 20260117
  Serious: Yes (Hospitalization)
  Sender: FDA-CTU
  Company Number: None

PATIENT
  Age: 78 Year
  Sex: Female

DRUGS (1)
  1. NUPLAZID [Suspect]
     Active Substance: PIMAVANSERIN TARTRATE
     Indication: Parkinson^s disease
     Dosage: 34 MG DAILY ORAL
     Route: 048
     Dates: start: 20240203

REACTIONS (10)
  - Hospice care [None]
  - Dementia [None]
  - Decreased appetite [None]
  - Adult failure to thrive [None]
  - Drooling [None]
  - Fall [None]
  - Injury [None]
  - Contusion [None]
  - Skin abrasion [None]
  - Urinary tract infection [None]

NARRATIVE: CASE EVENT DATE: 20250930
